FAERS Safety Report 11150306 (Version 1)
Quarter: 2015Q2

REPORT INFORMATION
  Report Type: Spontaneous
  Country: US (occurrence: US)
  Receive Date: 20150531
  Receipt Date: 20150531
  Transmission Date: 20150821
  Serious: No
  Sender: FDA-Public Use
  Company Number: US-ASTRAZENECA-2015SE49878

PATIENT
  Sex: Female
  Weight: 52.2 kg

DRUGS (16)
  1. OMEPRAZOLE. [Suspect]
     Active Substance: OMEPRAZOLE
     Indication: DYSPHONIA
     Route: 048
     Dates: start: 20150506, end: 20150516
  2. OMEPRAZOLE. [Suspect]
     Active Substance: OMEPRAZOLE
     Indication: CHEST DISCOMFORT
     Route: 048
     Dates: start: 20150506, end: 20150516
  3. OMEPRAZOLE. [Suspect]
     Active Substance: OMEPRAZOLE
     Indication: GASTROOESOPHAGEAL REFLUX DISEASE
     Route: 048
     Dates: start: 20150506, end: 20150516
  4. OMEPRAZOLE. [Suspect]
     Active Substance: OMEPRAZOLE
     Indication: DYSPHONIA
     Route: 048
     Dates: start: 20150517
  5. VITAMIN B12 [Concomitant]
     Active Substance: CYANOCOBALAMIN
     Dosage: DAILY
     Route: 048
  6. ASPIRIN. [Concomitant]
     Active Substance: ASPIRIN
     Route: 048
  7. NOVOLOG [Concomitant]
     Active Substance: INSULIN ASPART
     Indication: DIABETES MELLITUS
  8. ZALATAN/GENERIC [Concomitant]
     Indication: GLAUCOMA
     Route: 031
  9. VITAMIN D3 [Concomitant]
     Active Substance: CHOLECALCIFEROL
     Dosage: DAILY
     Route: 048
  10. LOSARTEN [Concomitant]
     Active Substance: LOSARTAN
     Indication: HYPERTENSION
     Route: 048
  11. OMEPRAZOLE. [Suspect]
     Active Substance: OMEPRAZOLE
     Indication: CHEST DISCOMFORT
     Route: 048
     Dates: start: 20150517
  12. LANTUS [Concomitant]
     Active Substance: INSULIN GLARGINE
     Indication: DIABETES MELLITUS
  13. CRANBERRY PILL [Concomitant]
     Dosage: DAILY
     Route: 048
  14. OMEPRAZOLE. [Suspect]
     Active Substance: OMEPRAZOLE
     Indication: GASTROOESOPHAGEAL REFLUX DISEASE
     Route: 048
     Dates: start: 20150517
  15. METFORMIN [Concomitant]
     Active Substance: METFORMIN HYDROCHLORIDE
     Indication: DIABETES MELLITUS
     Route: 048
  16. VIT E WITH OMEGA 3 [Concomitant]
     Dosage: DAILY
     Route: 048

REACTIONS (8)
  - Neck pain [Unknown]
  - Pain in extremity [Unknown]
  - Pain [Unknown]
  - Malaise [Not Recovered/Not Resolved]
  - Osteoporosis [Unknown]
  - Implant site extravasation [Unknown]
  - Back pain [Unknown]
  - Musculoskeletal pain [Unknown]
